FAERS Safety Report 24259176 (Version 1)
Quarter: 2024Q3

REPORT INFORMATION
  Report Type: Spontaneous
  Country: US (occurrence: None)
  Receive Date: 20240828
  Receipt Date: 20240828
  Transmission Date: 20241017
  Serious: Yes (Other)
  Sender: Public
  Company Number: None

PATIENT
  Sex: Female

DRUGS (11)
  1. ACTEMRA ACTPEN [Suspect]
     Active Substance: TOCILIZUMAB
     Indication: Rheumatoid arthritis
     Route: 058
     Dates: start: 20200319
  2. ACTEMRA INJ ACTPEN [Concomitant]
  3. ATORVASTATIN [Concomitant]
     Active Substance: ATORVASTATIN
  4. CYCLOBENZAPRINE [Concomitant]
     Active Substance: CYCLOBENZAPRINE
  5. GABAPENTIN [Concomitant]
     Active Substance: GABAPENTIN
  6. HYDROCO/APAP [Concomitant]
  7. METHOTREXATE [Concomitant]
  8. METHYLPREDNISOLONE [Concomitant]
     Active Substance: METHYLPREDNISOLONE
  9. PANTOPRAZOLE [Concomitant]
     Active Substance: PANTOPRAZOLE
  10. PEG 3350 [Concomitant]
     Active Substance: POLYETHYLENE GLYCOL 3350
  11. RELAFEN [Concomitant]
     Active Substance: NABUMETONE

REACTIONS (3)
  - Therapy non-responder [None]
  - Pain [None]
  - Therapy interrupted [None]
